FAERS Safety Report 13054785 (Version 9)
Quarter: 2017Q1

REPORT INFORMATION
  Report Type: Report from Study
  Country: US (occurrence: US)
  Receive Date: 20161222
  Receipt Date: 20170330
  Transmission Date: 20170428
  Serious: Yes (Other)
  Sender: FDA-Public Use
  Company Number: US-PFIZER INC-2016582544

PATIENT
  Age: 52 Year
  Sex: Female

DRUGS (2)
  1. LETROZOLE. [Suspect]
     Active Substance: LETROZOLE
     Dosage: UNK
  2. IBRANCE [Suspect]
     Active Substance: PALBOCICLIB
     Indication: BREAST CANCER
     Dosage: 125 MG, DAILY
     Route: 048
     Dates: start: 20161126, end: 20170218

REACTIONS (25)
  - Dysuria [Unknown]
  - Gastrooesophageal reflux disease [Unknown]
  - Swelling [Unknown]
  - Skin burning sensation [Unknown]
  - Constipation [Recovering/Resolving]
  - Cold sweat [Unknown]
  - Dysphonia [Unknown]
  - Nausea [Unknown]
  - Rash [Unknown]
  - Vomiting [Unknown]
  - Hot flush [Unknown]
  - Rhinorrhoea [Unknown]
  - Hypoaesthesia [Not Recovered/Not Resolved]
  - Hyperhidrosis [Unknown]
  - Weight fluctuation [Unknown]
  - Pain [Unknown]
  - Thermal burn [Not Recovered/Not Resolved]
  - Bone marrow failure [Unknown]
  - Nasopharyngitis [Unknown]
  - Anaemia [Unknown]
  - Pain in extremity [Unknown]
  - Urine odour abnormal [Unknown]
  - Skin disorder [Unknown]
  - Cough [Unknown]
  - Sneezing [Unknown]
